FAERS Safety Report 23392634 (Version 1)
Quarter: 2024Q1

REPORT INFORMATION
  Report Type: Report from Study
  Country: CA (occurrence: CA)
  Receive Date: 20240111
  Receipt Date: 20240111
  Transmission Date: 20240410
  Serious: Yes (Hospitalization)
  Sender: FDA-Public Use
  Company Number: CA-JAZZ-2022-CA-000614

PATIENT
  Sex: Female

DRUGS (24)
  1. XYREM [Suspect]
     Active Substance: SODIUM OXYBATE
     Indication: Cataplexy
     Dosage: TWO EQUAL DOSE (QHS AND 2.5 4 HRS AFTER 1ST DOSE)
     Route: 048
     Dates: start: 20181016
  2. XYREM [Suspect]
     Active Substance: SODIUM OXYBATE
     Dosage: 6 GRAM
     Route: 048
     Dates: start: 20181016, end: 20181016
  3. XYREM [Suspect]
     Active Substance: SODIUM OXYBATE
     Dosage: 12 GRAM,DIVIDED INTO THREE EQUAL DOSES
     Route: 048
     Dates: start: 201805, end: 20181012
  4. XYREM [Suspect]
     Active Substance: SODIUM OXYBATE
     Dosage: 10 GRAM,THREE EQUAL DOSES
     Route: 048
     Dates: start: 20180511, end: 2018
  5. XYREM [Suspect]
     Active Substance: SODIUM OXYBATE
     Dosage: 9 GRAM, DIVIDED IN TWO EQUAL DOSES(QHS AND 2.5 -4 HRS AFTER 1ST DOSE)
     Route: 048
     Dates: start: 20170325, end: 20180510
  6. XYREM [Suspect]
     Active Substance: SODIUM OXYBATE
     Dosage: 7.5 GRAM (DIVIDED IN TWO EQUAL DOSES(QHS AND 2.5 -4 HRS AFTER 1ST DOSE))
     Route: 048
     Dates: start: 20170310, end: 20170324
  7. XYREM [Suspect]
     Active Substance: SODIUM OXYBATE
     Dosage: 6 GRAM (DIVIDED IN TWO EQUAL DOSES(QHS AND 2.5 - 4 HRS AFTER 1ST DOSE))
     Route: 048
     Dates: start: 20170204, end: 20170309
  8. XYREM [Suspect]
     Active Substance: SODIUM OXYBATE
     Dosage: 4.5 GRAM (DIVIDED IN TWO EQUAL DOSES(QHS AND 2.5 - 4 HRS AFTER 1ST DOSE))
     Route: 048
     Dates: start: 20170120, end: 20170203
  9. XARELTO [Concomitant]
     Active Substance: RIVAROXABAN
     Dosage: UNK, QD
     Route: 048
  10. ABILIFY [Concomitant]
     Active Substance: ARIPIPRAZOLE
     Dosage: UNK, QD
     Route: 048
  11. PERINDOPRIL ARGININE [Concomitant]
     Active Substance: PERINDOPRIL ARGININE
     Dosage: UNK UNK, QD
     Route: 048
  12. CYMBALTA [Concomitant]
     Active Substance: DULOXETINE HYDROCHLORIDE
     Dosage: UNK
     Route: 048
  13. DIAMICRON [Concomitant]
     Dosage: UNK, BID
  14. FERROUS CITRATE [Concomitant]
     Active Substance: FERROUS CITRATE
     Dosage: UNK UNK, QD
     Route: 048
  15. DAPAGLIFLOZIN [Concomitant]
     Active Substance: DAPAGLIFLOZIN
     Dosage: UNK UNK, QD
     Route: 048
  16. METFORMIN HYDROCHLORIDE [Concomitant]
     Active Substance: METFORMIN HYDROCHLORIDE
     Dosage: UNK, BID
     Route: 048
  17. MODAFINIL [Concomitant]
     Active Substance: MODAFINIL
     Dosage: UNK, BID
     Route: 048
  18. PANTOPRAZOLE [Concomitant]
     Active Substance: PANTOPRAZOLE
     Dosage: UNK, QD
     Route: 048
  19. ROSUVASTATIN [Concomitant]
     Active Substance: ROSUVASTATIN
     Dosage: UNK, QD
     Route: 048
  20. SYNTHROID [Concomitant]
     Active Substance: LEVOTHYROXINE SODIUM
     Dosage: UNK, QD
     Route: 048
  21. VYVANSE [Concomitant]
     Active Substance: LISDEXAMFETAMINE DIMESYLATE
     Dosage: UNK, BID
     Route: 048
  22. ASCORBIC ACID [Concomitant]
     Active Substance: ASCORBIC ACID
     Dosage: UNK
  23. VITAMINS D3 [Concomitant]
     Dosage: UNK
  24. VITAMIN B12 [Concomitant]
     Active Substance: CYANOCOBALAMIN
     Dosage: UNK

REACTIONS (3)
  - Hospitalisation [Unknown]
  - Product dose omission issue [Unknown]
  - Off label use [Unknown]
